FAERS Safety Report 13448099 (Version 3)
Quarter: 2017Q2

REPORT INFORMATION
  Report Type: Spontaneous
  Country: GR (occurrence: GR)
  Receive Date: 20170417
  Receipt Date: 20170530
  Transmission Date: 20170830
  Serious: Yes (Death, Other)
  Sender: FDA-Public Use
  Company Number: GR-BAYER-2017-070720

PATIENT
  Age: 54 Year
  Sex: Male

DRUGS (3)
  1. NEXAVAR [Suspect]
     Active Substance: SORAFENIB
     Indication: HEPATOCELLULAR CARCINOMA
     Dosage: DOSE INCREASED
  2. NEXAVAR [Suspect]
     Active Substance: SORAFENIB
     Indication: HEPATOCELLULAR CARCINOMA
     Dosage: REDUCTION BY 50%
  3. NEXAVAR [Suspect]
     Active Substance: SORAFENIB
     Indication: HEPATOCELLULAR CARCINOMA
     Dosage: UNK
     Dates: start: 2015

REACTIONS (10)
  - Hepatic encephalopathy [None]
  - Lymphadenopathy [None]
  - Diarrhoea [Recovering/Resolving]
  - Lymphadenopathy [None]
  - Ascites [None]
  - Pain in extremity [Recovering/Resolving]
  - Palmar-plantar erythrodysaesthesia syndrome [Recovering/Resolving]
  - Hepatic lesion [None]
  - Diarrhoea [None]
  - Coma hepatic [Fatal]

NARRATIVE: CASE EVENT DATE: 2015
